FAERS Safety Report 7549320-2 (Version None)
Quarter: 2011Q2

REPORT INFORMATION
  Report Type: 
  Country: None (occurrence: None)
  Receive Date: 20110615
  Receipt Date: 20030305
  Transmission Date: 20111010
  Serious: Yes (Hospitalization, Disabling)
  Sender: FDA-Public Use
  Company Number: PHHO2003JP01548

PATIENT
  Sex: Male

DRUGS (2)
  1. ADALAT [Concomitant]
     Dosage: UNK
     Dates: start: 19910214, end: 20030113
  2. VALSARTAN [Suspect]
     Indication: HYPERTENSION
     Dosage: 40 MG, UNK
     Route: 048
     Dates: start: 20021225, end: 20030114

REACTIONS (5)
  - DYSARTHRIA [None]
  - HEMIPLEGIA [None]
  - CEREBRAL INFARCTION [None]
  - APHASIA [None]
  - ALTERED STATE OF CONSCIOUSNESS [None]
